FAERS Safety Report 11692547 (Version 1)
Quarter: 2015Q4

REPORT INFORMATION
  Report Type: Spontaneous
  Country: US (occurrence: US)
  Receive Date: 20151103
  Receipt Date: 20151103
  Transmission Date: 20160304
  Serious: No
  Sender: FDA-Public Use
  Company Number: US-PFIZER INC-2015187107

PATIENT
  Age: 90 Year
  Sex: Female
  Weight: 108 kg

DRUGS (3)
  1. ASPIRIN. [Concomitant]
     Active Substance: ASPIRIN
     Indication: PAIN
     Dosage: TWO IN MORNING, AND TWO AT BEDTIME, AS NEEDED
  2. TYLENOL WITH CODEINE [Concomitant]
     Active Substance: ACETAMINOPHEN\CODEINE PHOSPHATE
     Dosage: UNK
  3. AROMASIN [Suspect]
     Active Substance: EXEMESTANE
     Indication: BREAST CANCER
     Dosage: 25 MG, 1X/DAY (AFTER A MEAL)
     Route: 048
     Dates: start: 2015, end: 201510

REACTIONS (4)
  - Intentional product misuse [Unknown]
  - Pain in extremity [Unknown]
  - Condition aggravated [Recovered/Resolved]
  - Pain [Recovered/Resolved]

NARRATIVE: CASE EVENT DATE: 2015
